FAERS Safety Report 5671209-4 (Version None)
Quarter: 2008Q1

REPORT INFORMATION
  Report Type: 
  Country: None (occurrence: None)
  Receive Date: 20080318
  Receipt Date: 20080310
  Transmission Date: 20080703
  Serious: Yes (Hospitalization)
  Sender: FDA-Public Use
  Company Number: PHBS2008CH03138

PATIENT
  Age: 14 Year
  Sex: Male

DRUGS (3)
  1. RITALIN LA [Suspect]
     Dosage: 30 MG/DAY
  2. RITALIN-SR [Suspect]
     Dosage: 20 MG/DAY
  3. ALCOHOL [Suspect]

REACTIONS (5)
  - BALANCE DISORDER [None]
  - DIZZINESS [None]
  - DRUG INTERACTION [None]
  - SLEEP DISORDER [None]
  - VOMITING [None]
